FAERS Safety Report 9228883 (Version 3)
Quarter: 2013Q2

REPORT INFORMATION
  Report Type: Report from Study
  Country: US (occurrence: US)
  Receive Date: 20130412
  Receipt Date: 20130611
  Transmission Date: 20140414
  Serious: No
  Sender: FDA-Public Use
  Company Number: US-VERTEX PHARMACEUTICALS INC.-2013-004699

PATIENT
  Age: 67 Year
  Sex: Male

DRUGS (3)
  1. VX-950 (TELAPREVIR) [Suspect]
     Indication: HEPATITIS C
     Dosage: 750 MG, TID
     Route: 048
     Dates: start: 20130222, end: 20130401
  2. PEGASYS [Suspect]
     Indication: HEPATITIS C
     Dosage: UNK
     Dates: start: 20130222, end: 20130401
  3. RIBAVIRIN [Suspect]
     Indication: HEPATITIS C
     Dosage: UNK
     Dates: start: 20130222, end: 20130401

REACTIONS (6)
  - Dizziness [Unknown]
  - Headache [Unknown]
  - Visual impairment [Unknown]
  - Stomatitis [Unknown]
  - Asthenia [Unknown]
  - Rash erythematous [Recovered/Resolved]
